FAERS Safety Report 12558617 (Version 1)
Quarter: 2016Q3

REPORT INFORMATION
  Report Type: Spontaneous
  Country: DE (occurrence: DE)
  Receive Date: 20160715
  Receipt Date: 20160715
  Transmission Date: 20161109
  Serious: No
  Sender: FDA-Public Use
  Company Number: DE-LUPIN PHARMACEUTICALS INC.-2015-03266

PATIENT
  Sex: Male

DRUGS (2)
  1. LAMOTRIGIN-HORMOSAN 25 MG DISPERS [Suspect]
     Active Substance: LAMOTRIGINE
     Route: 065
  2. LAMOTRIGIN-HORMOSAN 25 MG DISPERS [Suspect]
     Active Substance: LAMOTRIGINE
     Indication: PRODUCT USED FOR UNKNOWN INDICATION
     Route: 065

REACTIONS (3)
  - Product substitution issue [None]
  - Product substitution issue [Unknown]
  - Pruritus [Not Recovered/Not Resolved]
